FAERS Safety Report 24732413 (Version 1)
Quarter: 2024Q4

REPORT INFORMATION
  Report Type: Spontaneous
  Country: RO (occurrence: RO)
  Receive Date: 20241213
  Receipt Date: 20241213
  Transmission Date: 20250114
  Serious: Yes (Other)
  Sender: BAYER HEALTHCARE PHARMACEUTICALS INC.
  Company Number: RO-BAYER-2024A176795

PATIENT
  Age: 49 Year
  Sex: Male
  Weight: 80 kg

DRUGS (1)
  1. STIVARGA [Suspect]
     Active Substance: REGORAFENIB MONOHYDRATE
     Indication: Hepatocellular carcinoma
     Dosage: 40 MG, QD FOR 21 DAYS
     Dates: start: 202404, end: 202410

REACTIONS (8)
  - Hepatocellular carcinoma [None]
  - Alpha 1 foetoprotein increased [None]
  - Hepatic mass [None]
  - Metastases to lymph nodes [None]
  - Thrombosis [None]
  - Pulmonary mass [None]
  - Palmar-plantar erythrodysaesthesia syndrome [None]
  - Product use issue [None]

NARRATIVE: CASE EVENT DATE: 20240401
